FAERS Safety Report 12795858 (Version 1)
Quarter: 2016Q3

REPORT INFORMATION
  Report Type: Spontaneous
  Country: US (occurrence: US)
  Receive Date: 20160929
  Receipt Date: 20160929
  Transmission Date: 20161109
  Serious: Yes (Other)
  Sender: FDA-Public Use
  Company Number: US-TEIKOKU PHARMA USA-TPU2016-00628

PATIENT
  Sex: Female
  Weight: 43.13 kg

DRUGS (10)
  1. LEVOTHYROXINE. [Concomitant]
     Active Substance: LEVOTHYROXINE
     Indication: THYROID DISORDER
     Dosage: 1 TABLET BY MOUTH DAILY
     Route: 048
     Dates: start: 2011
  2. LANSOPRAZOLE. [Concomitant]
     Active Substance: LANSOPRAZOLE
     Indication: GASTRIC DISORDER
  3. PROPRANOLOL [Concomitant]
     Active Substance: PROPRANOLOL\PROPRANOLOL HYDROCHLORIDE
     Indication: SINUS TACHYCARDIA
     Route: 048
     Dates: start: 2008
  4. PROPRANOLOL [Concomitant]
     Active Substance: PROPRANOLOL\PROPRANOLOL HYDROCHLORIDE
     Indication: SYNCOPE
  5. KEPPRA [Concomitant]
     Active Substance: LEVETIRACETAM
     Indication: SEIZURE
     Dosage: 1 TABLET TWICE DAILY
     Dates: start: 2011
  6. GABAPENTIN. [Concomitant]
     Active Substance: GABAPENTIN
     Indication: NEURALGIA
     Dosage: 2 CAPSULES 3 TIMES DAILY
     Dates: start: 2011
  7. LIDOCAINE PATCH [Suspect]
     Active Substance: LIDOCAINE
     Indication: BACK PAIN
     Route: 061
     Dates: start: 2008
  8. BACLOFEN. [Concomitant]
     Active Substance: BACLOFEN
     Indication: PAIN
     Dosage: 1 TABLET BY MOUTH EVERY 4 HOURS AS NEEDED (3-6 TABLETS DAILY)
     Route: 048
     Dates: start: 2013
  9. CLONAZEPAM. [Concomitant]
     Active Substance: CLONAZEPAM
     Indication: ANXIETY
     Dosage: 1 TABLET 3 TIMES DAILY
     Dates: start: 2009
  10. TOPAMAX [Concomitant]
     Active Substance: TOPIRAMATE
     Indication: SEIZURE
     Dosage: 1 TABLET TWICE DAILY
     Dates: start: 2008

REACTIONS (1)
  - Seizure [Unknown]

NARRATIVE: CASE EVENT DATE: 2009
